FAERS Safety Report 5308780-8 (Version None)
Quarter: 2007Q2

REPORT INFORMATION
  Report Type: 
  Country: None (occurrence: None)
  Receive Date: 20070426
  Receipt Date: 20070416
  Transmission Date: 20071010
  Serious: Yes (Life-Threatening, Hospitalization, Other)
  Sender: FDA-Public Use
  Company Number: US-ABBOTT-07P-163-0365372-00

PATIENT
  Age: 73 Year
  Sex: Male

DRUGS (5)
  1. K-TAB [Suspect]
     Indication: ELECTROLYTE SUBSTITUTION THERAPY
     Dates: start: 20070307, end: 20070329
  2. SPIRONOLACTONE [Suspect]
     Indication: CARDIAC FAILURE CONGESTIVE
     Dates: start: 20060514, end: 20070329
  3. DABIGATRAN ETEXILATE [Suspect]
     Indication: DRUG USE FOR UNKNOWN INDICATION
  4. BUMETANIDE [Concomitant]
     Indication: DRUG USE FOR UNKNOWN INDICATION
  5. LISINOPRIL [Concomitant]
     Indication: DRUG USE FOR UNKNOWN INDICATION

REACTIONS (6)
  - ATRIAL FIBRILLATION [None]
  - ATRIOVENTRICULAR BLOCK COMPLETE [None]
  - BRADYCARDIA [None]
  - DYSPNOEA [None]
  - HYPERKALAEMIA [None]
  - MEAN ARTERIAL PRESSURE DECREASED [None]
